FAERS Safety Report 6357387-2 (Version None)
Quarter: 2009Q3

REPORT INFORMATION
  Report Type: 
  Country: None (occurrence: None)
  Receive Date: 20090916
  Receipt Date: 20070618
  Transmission Date: 20100115
  Serious: Yes (Other)
  Sender: FDA-Public Use
  Company Number: US-ASTRAZENECA-2006UW11307

PATIENT
  Age: 12846 Day
  Sex: Male
  Weight: 120.7 kg

DRUGS (13)
  1. SEROQUEL [Suspect]
     Indication: DEPRESSION
     Dosage: 100MG TO 800MG
     Route: 048
     Dates: start: 20030724
  2. SEROQUEL [Suspect]
     Indication: POST-TRAUMATIC STRESS DISORDER
     Dosage: 100MG TO 800MG
     Route: 048
     Dates: start: 20030724
  3. SEROQUEL [Suspect]
     Indication: ANXIETY
     Dosage: 100MG TO 800MG
     Route: 048
     Dates: start: 20030724
  4. SEROQUEL [Suspect]
     Route: 048
  5. SEROQUEL [Suspect]
     Route: 048
  6. SEROQUEL [Suspect]
     Route: 048
  7. ZYPREXA [Suspect]
     Dosage: 10 -20 MG
     Dates: start: 20020901
  8. ZYPREXA [Suspect]
     Route: 048
     Dates: start: 20030724
  9. ABILIFY [Concomitant]
  10. GEODON [Concomitant]
  11. LISINOPRIL [Concomitant]
     Route: 048
     Dates: start: 20030703
  12. TRAZODONE [Concomitant]
     Dates: start: 20041220
  13. CELEXA [Concomitant]
     Dates: start: 20041220

REACTIONS (6)
  - BLOOD CHOLESTEROL INCREASED [None]
  - BLOOD TRIGLYCERIDES INCREASED [None]
  - DIABETES MELLITUS [None]
  - HYPERLIPIDAEMIA [None]
  - NEUROPATHY PERIPHERAL [None]
  - TYPE 2 DIABETES MELLITUS [None]
